FAERS Safety Report 7874752-2 (Version None)
Quarter: 2011Q4

REPORT INFORMATION
  Report Type: 
  Country: None (occurrence: None)
  Receive Date: 20111014
  Receipt Date: 20110610
  Transmission Date: 20120403
  Serious: Yes (Other)
  Sender: FDA-Public Use
  Company Number: 1000017752

PATIENT
  Age: 75 Year
  Sex: Female

DRUGS (9)
  1. VITAMIN D (VITAMIN D) (VITAMIN D) [Concomitant]
  2. VIACTIV (CALCIUM) (CALCIUM) [Concomitant]
  3. CENTRUM VITAMINS (CENTRUM VITAMINS) (CENTRUM VITAMINS) [Concomitant]
  4. SYNTHROID (LEVOTHYROXINE SODIUM) (50 MICROGRAM, TABLETS) (LEVOTHYROXIN [Concomitant]
  5. LEXAPRO [Suspect]
     Indication: PANIC ATTACK
     Dosage: 10 MG (10 MG, 1 IN 1 D), ORAL
     Route: 048
     Dates: start: 20101101, end: 20101201
  6. ALENDRONATE (ALENDRONATE SODIUM) (ALENDRONATE SODIUM) [Concomitant]
  7. AMBIEN (ZOLPIDEM TARTRATE) (5 MILLIGRAM, TABLETS) (ZOLPIDEM TARTRATE) [Concomitant]
  8. SIMVASTATIN (SIMVASTATIN) (20 MILLIGRAM, TABLETS) (SIMVASTATIN) [Concomitant]
  9. CALCIUM (CALCIUM) (CALCIUM) [Concomitant]

REACTIONS (1)
  - HYPERTENSION [None]
